FAERS Safety Report 4609782-7 (Version None)
Quarter: 2005Q1

REPORT INFORMATION
  Report Type: 
  Country: None (occurrence: None)
  Receive Date: 20050314
  Receipt Date: 20050228
  Transmission Date: 20050727
  Serious: Yes (Death, Hospitalization)
  Sender: FDA-Public Use
  Company Number: GBWYE494110MAR05

PATIENT
  Age: 79 Year
  Sex: Female

DRUGS (5)
  1. ATIVAN [Suspect]
     Dosage: 2 INJECTIONS
     Dates: start: 20050201
  2. PREMARIN [Suspect]
  3. DILANTIN [Concomitant]
  4. ZOLOFT [Concomitant]
  5. PROCARDIA [Concomitant]

REACTIONS (2)
  - BRONCHITIS [None]
  - DYSPNOEA [None]
